FAERS Safety Report 6730991-5 (Version None)
Quarter: 2010Q2

REPORT INFORMATION
  Report Type: 
  Country: None (occurrence: None)
  Receive Date: 20100518
  Receipt Date: 20100507
  Transmission Date: 20101027
  Serious: Yes (Hospitalization)
  Sender: FDA-Public Use
  Company Number: DE-WYE-H15071710

PATIENT
  Age: 77 Year
  Sex: Male

DRUGS (9)
  1. PANTOPRAZOLE [Interacting]
     Indication: GASTRIC ULCER HAEMORRHAGE
     Route: 048
     Dates: start: 20090801
  2. CEFOTIAM HYDROCHLORIDE [Interacting]
     Indication: PNEUMONIA
     Route: 042
     Dates: start: 20090831, end: 20090903
  3. METRONIDAZOLE [Suspect]
     Indication: PNEUMONIA
     Route: 048
     Dates: start: 20090828, end: 20090904
  4. HALOPERIDOL [Concomitant]
     Indication: DEMENTIA
     Route: 048
  5. PENTOXIFYLLINE [Concomitant]
     Indication: PERIPHERAL ARTERIAL OCCLUSIVE DISEASE
     Route: 048
     Dates: start: 20090801
  6. NEBIVOLOL [Concomitant]
     Indication: HYPERTENSION
     Route: 048
     Dates: start: 20090801
  7. TRIAMPUR COMPOSITUM [Concomitant]
     Indication: HYPERTENSION
     Route: 048
     Dates: start: 20090801
  8. ACETYLSALICYLIC ACID [Suspect]
     Indication: ISCHAEMIC HEART DISEASE PROPHYLAXIS
     Route: 048
     Dates: start: 20090801
  9. CLOPIDOGREL [Concomitant]
     Indication: ISCHAEMIC HEART DISEASE PROPHYLAXIS
     Dosage: 75 MG, FREQUENCY NOT SPECIFIED
     Route: 048

REACTIONS (3)
  - CLOSTRIDIUM DIFFICILE COLITIS [None]
  - DRUG INTERACTION [None]
  - DRY MOUTH [None]
